FAERS Safety Report 4288125-5 (Version None)
Quarter: 2004Q1

REPORT INFORMATION
  Report Type: 
  Country: None (occurrence: None)
  Receive Date: 20040209
  Receipt Date: 20030822
  Transmission Date: 20041129
  Serious: No
  Sender: FDA-Public Use
  Company Number: US-GLAXOSMITHKLINE-A0423109A

PATIENT
  Age: 58 Year
  Sex: Female

DRUGS (5)
  1. PAXIL [Suspect]
     Indication: DEPRESSION
     Dosage: 20MG PER DAY
     Route: 048
     Dates: start: 20030524
  2. TAMOXIFEN [Concomitant]
  3. VIOXX [Concomitant]
  4. LEVOXYL [Concomitant]
  5. LORAZEPAM [Concomitant]

REACTIONS (1)
  - ORAL CANDIDIASIS [None]
